FAERS Safety Report 7282515-4 (Version None)
Quarter: 2011Q1

REPORT INFORMATION
  Report Type: 
  Country: None (occurrence: None)
  Receive Date: 20110209
  Receipt Date: 20110127
  Transmission Date: 20110831
  Serious: Yes (Hospitalization)
  Sender: FDA-Public Use
  Company Number: MX-ELI_LILLY_AND_COMPANY-MX201101007034

PATIENT
  Age: 74 Year
  Sex: Female
  Weight: 68 kg

DRUGS (6)
  1. FORTEO [Suspect]
     Indication: PELVIC FRACTURE
     Dosage: 20 UG, DAILY (1/D)
     Route: 058
     Dates: start: 20110115, end: 20110117
  2. GLIBENCLAMIDE [Concomitant]
     Dosage: 4 MG, 2/D
  3. GLIBENCLAMIDE [Concomitant]
     Dosage: 4 MG, DAILY (1/D)
  4. CANDESARTAN [Concomitant]
     Indication: BLOOD PRESSURE
  5. METFORMIN [Concomitant]
     Dosage: 850 MG, 2/D
  6. CELEBREX [Concomitant]
     Indication: PAIN

REACTIONS (2)
  - BLOOD GLUCOSE DECREASED [None]
  - BLOOD PRESSURE INCREASED [None]
